FAERS Safety Report 5166993-2 (Version None)
Quarter: 2006Q4

REPORT INFORMATION
  Report Type: 
  Country: None (occurrence: None)
  Receive Date: 20061201
  Receipt Date: 20061201
  Transmission Date: 20070319
  Serious: Yes (Death)
  Sender: FDA-Public Use
  Company Number: None

PATIENT
  Age: 51 Year
  Sex: Male
  Weight: 89 kg

DRUGS (3)
  1. DEXMEDETOMIDINE [Suspect]
     Indication: SEDATION
     Dosage: 200MCG CONTINUOS IV DRIP
     Route: 041
  2. MIDAZOLAM HYDROCHLORIDE [Concomitant]
  3. FENTANYL [Concomitant]

REACTIONS (4)
  - CARDIAC ARREST [None]
  - HYPOTENSION [None]
  - ILL-DEFINED DISORDER [None]
  - POST PROCEDURAL COMPLICATION [None]
